FAERS Safety Report 5580029-0 (Version None)
Quarter: 2007Q4

REPORT INFORMATION
  Report Type: 
  Country: None (occurrence: None)
  Receive Date: 20071228
  Receipt Date: 20071218
  Transmission Date: 20080405
  Serious: Yes (Death)
  Sender: FDA-Public Use
  Company Number: 2007S1013495

PATIENT
  Age: 66 Year
  Sex: Female

DRUGS (4)
  1. PHENYTOIN [Suspect]
     Indication: CONVULSION PROPHYLAXIS
     Dosage: 300 MG; DAILY;
  2. DEXAMETHASONE (CON.) [Concomitant]
  3. AMLODIPINE (CON.) [Concomitant]
  4. METFORMIN (CON.) [Concomitant]

REACTIONS (5)
  - BRAIN HERNIATION [None]
  - CEREBRAL ISCHAEMIA [None]
  - HAEMOGLOBIN DECREASED [None]
  - HAEMORRHAGE INTRACRANIAL [None]
  - THROMBOCYTOPENIA [None]
